FAERS Safety Report 25953489 (Version 1)
Quarter: 2025Q4

REPORT INFORMATION
  Report Type: Spontaneous
  Country: CH (occurrence: CH)
  Receive Date: 20251023
  Receipt Date: 20251023
  Transmission Date: 20260117
  Serious: Yes (Hospitalization, Other)
  Sender: SANDOZ
  Company Number: None

PATIENT
  Age: 52 Year
  Sex: Male

DRUGS (13)
  1. CREON [Suspect]
     Active Substance: PANCRELIPASE AMYLASE\PANCRELIPASE LIPASE\PANCRELIPASE PROTEASE
     Indication: Product used for unknown indication
     Dosage: 100000 DF 4 SEPARATED DOSES
     Route: 048
  2. ESCITALOPRAM OXALATE [Suspect]
     Active Substance: ESCITALOPRAM OXALATE
     Indication: Depression
     Dosage: 10 MG 1 SEPARATED DOSES
     Route: 048
  3. EZETIMIBE [Suspect]
     Active Substance: EZETIMIBE
     Indication: Product used for unknown indication
     Dosage: 10 MG 1 SEPARATED DOSES
     Route: 048
  4. PIPERACILLIN SODIUM\TAZOBACTAM SODIUM [Suspect]
     Active Substance: PIPERACILLIN SODIUM\TAZOBACTAM SODIUM
     Indication: Product used for unknown indication
     Dosage: 4.5 G
     Route: 042
     Dates: start: 20250428, end: 20250505
  5. FRAGMIN [Concomitant]
     Active Substance: DALTEPARIN SODIUM
     Indication: Thrombosis prophylaxis
     Dosage: 5000 DF 1 SEPARATED DOSES
     Route: 048
     Dates: start: 20250428, end: 20250507
  6. KCL [Concomitant]
     Active Substance: POTASSIUM CHLORIDE
     Indication: Product used for unknown indication
     Dosage: 1173 MG  3 SEPARATED DOSES
     Route: 048
     Dates: start: 20250504
  7. KONAKION [Concomitant]
     Active Substance: PHYTONADIONE
     Indication: Product used for unknown indication
     Dosage: UNK
     Route: 065
     Dates: start: 20250507, end: 20250507
  8. Metronidazole sintetica [Concomitant]
     Indication: Product used for unknown indication
     Dosage: 500 MG, Q8H
     Route: 042
     Dates: start: 20250505, end: 20250509
  9. MOTILIUM [Concomitant]
     Active Substance: DOMPERIDONE
     Indication: Product used for unknown indication
     Dosage: 40 MG 4 SEPARATED DOSES
     Route: 048
     Dates: start: 20250429, end: 20250512
  10. PANTOPRAZOLE SODIUM [Concomitant]
     Active Substance: PANTOPRAZOLE SODIUM
     Indication: Product used for unknown indication
     Dosage: 40 MG 1 SEPARATED DOSES
     Route: 048
     Dates: start: 20250506
  11. PRADIF T [Concomitant]
     Active Substance: TAMSULOSIN HYDROCHLORIDE
     Indication: Product used for unknown indication
     Dosage: 0.4 MG 1 SEPARATED DOSES
     Route: 048
  12. ROCEPHIN [Concomitant]
     Active Substance: CEFTRIAXONE SODIUM
     Indication: Product used for unknown indication
     Dosage: 2000 MG
     Route: 042
     Dates: start: 20250505, end: 20250509
  13. VANCOCIN [Concomitant]
     Active Substance: VANCOMYCIN HYDROCHLORIDE
     Indication: Product used for unknown indication
     Dosage: 1250 MG, Q12H
     Route: 042
     Dates: start: 20250428, end: 20250505

REACTIONS (2)
  - Acute kidney injury [Recovering/Resolving]
  - Rash maculo-papular [Recovered/Resolved]

NARRATIVE: CASE EVENT DATE: 20250505
